FAERS Safety Report 12939720 (Version 1)
Quarter: 2016Q4

REPORT INFORMATION
  Report Type: Spontaneous
  Country: CA (occurrence: CA)
  Receive Date: 20161115
  Receipt Date: 20161115
  Transmission Date: 20170207
  Serious: Yes (Hospitalization, Other)
  Sender: FDA-Public Use
  Company Number: CA-AMGEN-CANSP2016156978

PATIENT
  Age: 42 Year
  Sex: Female

DRUGS (7)
  1. AZATHIOPRINE. [Suspect]
     Active Substance: AZATHIOPRINE
     Indication: VASCULITIS
     Dosage: 100 MG, UNK
     Route: 048
  2. CALCIUM [Concomitant]
     Active Substance: CALCIUM
  3. LOSEC [Concomitant]
     Active Substance: OMEPRAZOLE
     Dosage: UNK
  4. PROLIA [Suspect]
     Active Substance: DENOSUMAB
     Indication: OSTEOPOROSIS
     Dosage: 60 MG, UNK
     Route: 058
  5. COLCHICINE. [Concomitant]
     Active Substance: COLCHICINE
     Dosage: UNK
  6. PREDNISONE. [Concomitant]
     Active Substance: PREDNISONE
     Dosage: UNK
  7. BRIMONIDINE [Concomitant]
     Active Substance: BRIMONIDINE TARTRATE
     Dosage: UNK
     Route: 047

REACTIONS (2)
  - Paralysis [Not Recovered/Not Resolved]
  - Off label use [Not Recovered/Not Resolved]
